FAERS Safety Report 15806274 (Version 1)
Quarter: 2019Q1

REPORT INFORMATION
  Report Type: Spontaneous
  Country: US (occurrence: US)
  Receive Date: 20190109
  Receipt Date: 20190109
  Transmission Date: 20190417
  Serious: Yes (Other)
  Sender: FDA-Public Use
  Company Number: None

PATIENT
  Age: 87 Year
  Sex: Male
  Weight: 68 kg

DRUGS (1)
  1. CEFTRIAXONE. [Suspect]
     Active Substance: CEFTRIAXONE
     Dates: start: 20190106

REACTIONS (3)
  - Infusion related reaction [None]
  - Eye swelling [None]
  - Injection site pruritus [None]

NARRATIVE: CASE EVENT DATE: 20190106
